FAERS Safety Report 15565654 (Version 1)
Quarter: 2018Q4

REPORT INFORMATION
  Report Type: Spontaneous
  Country: ES (occurrence: ES)
  Receive Date: 20181030
  Receipt Date: 20181030
  Transmission Date: 20190205
  Serious: Yes (Life-Threatening, Hospitalization, Other)
  Sender: FDA-Public Use
  Company Number: ES-MACLEODS PHARMACEUTICALS US LTD-MAC2017006439

PATIENT

DRUGS (13)
  1. ACICLOVIR [Suspect]
     Active Substance: ACYCLOVIR
     Indication: ENCEPHALITIS AUTOIMMUNE
     Dosage: 30 MG/KG, QD (10 MG/KG, 3X/DAY (Q 8H))
     Route: 042
  2. PREDNISONE. [Concomitant]
     Active Substance: PREDNISONE
     Dosage: 30 MG/48 HOURS
     Route: 065
  3. LEVOFLOXACIN. [Suspect]
     Active Substance: LEVOFLOXACIN
     Dosage: 500 MG, BID, (1ST DAY)
     Route: 042
  4. ENOXAPARIN [Concomitant]
     Active Substance: ENOXAPARIN
     Indication: PRODUCT USED FOR UNKNOWN INDICATION
     Dosage: 0.91 MG/KG, QD
     Route: 058
  5. METHYLPREDNISOLONE. [Concomitant]
     Active Substance: METHYLPREDNISOLONE
     Dosage: 30 GM, QD
     Route: 042
  6. METHYLPREDNISOLONE. [Concomitant]
     Active Substance: METHYLPREDNISOLONE
     Indication: ENCEPHALITIS AUTOIMMUNE
     Dosage: 500 MG, QD
     Route: 042
  7. PREDNISONE. [Concomitant]
     Active Substance: PREDNISONE
     Indication: ENCEPHALITIS AUTOIMMUNE
     Dosage: 60 MG, QD
     Route: 048
  8. WARFARIN [Concomitant]
     Active Substance: WARFARIN
     Indication: PRODUCT USED FOR UNKNOWN INDICATION
     Dosage: UNK
     Route: 065
  9. ACICLOVIR [Suspect]
     Active Substance: ACYCLOVIR
     Dosage: 10 MILLIGRAM/KILOGRAM, TID, 10 MG/KG, Q8H
     Route: 042
  10. LEVOFLOXACIN. [Suspect]
     Active Substance: LEVOFLOXACIN
     Indication: MENINGOENCEPHALITIS HERPETIC
     Dosage: 500 MG, QD, 14 DAYS, (500 MG, 1X/DAY) (NEXT 14 DAY)
     Route: 042
  11. IMMUNGLOBULIN [Concomitant]
     Indication: ENCEPHALITIS AUTOIMMUNE
     Dosage: UNK
     Route: 065
  12. INFLUENZA VACCINE [Concomitant]
     Active Substance: INFLUENZA VIRUS VACCINE
     Indication: PROPHYLAXIS
     Dosage: UNK, SOLUTION FOR INJECTION
     Route: 065
  13. SERTRALINE [Concomitant]
     Active Substance: SERTRALINE HYDROCHLORIDE
     Indication: DEPRESSION
     Dosage: UNK
     Route: 048

REACTIONS (5)
  - Condition aggravated [Recovered/Resolved]
  - Haemoglobin decreased [Recovered/Resolved]
  - Factor XIII Inhibition [Recovered/Resolved]
  - Factor XIII deficiency [Recovered/Resolved]
  - Muscle haemorrhage [Recovered/Resolved]
